FAERS Safety Report 25436292 (Version 1)
Quarter: 2025Q2

REPORT INFORMATION
  Report Type: Spontaneous
  Country: US (occurrence: US)
  Receive Date: 20250614
  Receipt Date: 20250614
  Transmission Date: 20250716
  Serious: No
  Sender: SERVIER
  Company Number: US-SERVIER-S25006770

PATIENT

DRUGS (2)
  1. VORANIGO [Suspect]
     Active Substance: VORASIDENIB
     Indication: Brain neoplasm malignant
     Dosage: 40 MG, QD
     Route: 048
     Dates: start: 20250507, end: 202505
  2. VORANIGO [Suspect]
     Active Substance: VORASIDENIB
     Dosage: 20 MG, QD
     Route: 048
     Dates: start: 202505

REACTIONS (3)
  - Fatigue [Not Recovered/Not Resolved]
  - Hiccups [Recovered/Resolved]
  - Hiccups [Recovering/Resolving]

NARRATIVE: CASE EVENT DATE: 20250501
